FAERS Safety Report 4897852-8 (Version None)
Quarter: 2006Q1

REPORT INFORMATION
  Report Type: 
  Country: None (occurrence: None)
  Receive Date: 20060201
  Receipt Date: 20050929
  Transmission Date: 20060701
  Serious: Yes (Other)
  Sender: FDA-Public Use
  Company Number: BE-GLAXOSMITHKLINE-B0396041A

PATIENT
  Age: 70 Year
  Sex: Male
  Weight: 70 kg

DRUGS (2)
  1. MALARONE [Suspect]
     Indication: PROPHYLAXIS
     Dosage: 1TAB PER DAY
     Route: 048
  2. TEDIVAX [Concomitant]
     Dates: start: 20041109

REACTIONS (3)
  - ANAL FISSURE [None]
  - HAEMORRHAGE [None]
  - PROCTALGIA [None]
